FAERS Safety Report 10262604 (Version 1)
Quarter: 2014Q2

REPORT INFORMATION
  Report Type: Spontaneous
  Country: TR (occurrence: TR)
  Receive Date: 20140626
  Receipt Date: 20140626
  Transmission Date: 20141212
  Serious: Yes (Life-Threatening, Other)
  Sender: FDA-Public Use
  Company Number: TR-ACTAVIS-2014-14243

PATIENT
  Age: 39 Year
  Sex: Female

DRUGS (3)
  1. NIFEDIPINE (UNKNOWN) [Suspect]
     Indication: TOCOLYSIS
     Dosage: 20 MG, Q4H
     Route: 048
  2. BETAMETHASONE (UNKNOWN) [Suspect]
     Indication: TOCOLYSIS
     Dosage: 12 MG, DAILY
     Route: 030
  3. AMOXICILLIN [Concomitant]
     Indication: PRODUCT USED FOR UNKNOWN INDICATION
     Dosage: 1 G, Q6H
     Route: 042

REACTIONS (4)
  - Cardio-respiratory arrest [Recovered/Resolved]
  - Pulmonary oedema [Recovered/Resolved]
  - Caesarean section [Unknown]
  - Maternal exposure during pregnancy [Unknown]
